FAERS Safety Report 5330884-4 (Version None)
Quarter: 2007Q2

REPORT INFORMATION
  Report Type: 
  Country: None (occurrence: None)
  Receive Date: 20070516
  Receipt Date: 20070503
  Transmission Date: 20071010
  Serious: Yes (Other)
  Sender: FDA-Public Use
  Company Number: 4594

PATIENT
  Age: 20 Year
  Sex: Female

DRUGS (2)
  1. AMNESTEEM [Suspect]
     Indication: ACNE
     Dosage: 40 MG, BID, PO.
     Route: 048
     Dates: start: 20060712, end: 20070202
  2. BIRTH CONTROL PILLS [Concomitant]

REACTIONS (3)
  - DRUG DOSE OMISSION [None]
  - DRUG EXPOSURE BEFORE PREGNANCY [None]
  - PREGNANCY [None]
